FAERS Safety Report 25037924 (Version 1)
Quarter: 2025Q1

REPORT INFORMATION
  Report Type: Spontaneous
  Country: FR (occurrence: FR)
  Receive Date: 20250304
  Receipt Date: 20250304
  Transmission Date: 20250409
  Serious: Yes (Death, Other)
  Sender: BRISTOL-MYERS SQUIBB COMPANY
  Company Number: None

PATIENT
  Age: 90 Year
  Sex: Female
  Weight: 45 kg

DRUGS (2)
  1. ELIQUIS [Suspect]
     Active Substance: APIXABAN
     Indication: Pulmonary embolism
     Dosage: 10 MG X2/DAY
     Route: 048
     Dates: start: 20250107
  2. ELIQUIS [Suspect]
     Active Substance: APIXABAN
     Dosage: 5 MG X2/DAY
     Route: 048
     Dates: start: 20250112, end: 20250126

REACTIONS (1)
  - Gastrointestinal haemorrhage [Fatal]

NARRATIVE: CASE EVENT DATE: 20250126
